FAERS Safety Report 24753068 (Version 1)
Quarter: 2024Q4

REPORT INFORMATION
  Report Type: Other
  Country: US (occurrence: US)
  Receive Date: 20241219
  Receipt Date: 20241219
  Transmission Date: 20250115
  Serious: Yes (Hospitalization, Other)
  Sender: AVONDALE PHARMACEUTICALS
  Company Number: US-Avondale Pharmaceuticals, LLC-2167422

PATIENT
  Age: 49 Year
  Sex: Male

DRUGS (2)
  1. MOBIC [Suspect]
     Active Substance: MELOXICAM
     Indication: Pain in extremity
  2. Artri King [Concomitant]

REACTIONS (1)
  - Membranous-like glomerulopathy with masked IgG-kappa deposits [Recovered/Resolved]
